FAERS Safety Report 25073910 (Version 3)
Quarter: 2025Q2

REPORT INFORMATION
  Report Type: Spontaneous
  Country: SK (occurrence: SK)
  Receive Date: 20250313
  Receipt Date: 20250408
  Transmission Date: 20250716
  Serious: Yes (Death, Hospitalization, Other)
  Sender: SANOFI AVENTIS
  Company Number: SK-ASTELLAS-2025-AER-014039

PATIENT
  Age: 73 Year
  Sex: Male

DRUGS (5)
  1. TAMSULOSIN HYDROCHLORIDE [Suspect]
     Active Substance: TAMSULOSIN HYDROCHLORIDE
     Indication: Benign prostatic hyperplasia
     Dates: start: 202405, end: 20240926
  2. RIVAROXABAN [Suspect]
     Active Substance: RIVAROXABAN
     Indication: Atrial fibrillation
     Dates: start: 202405, end: 20240926
  3. PROPAFENONE [Suspect]
     Active Substance: PROPAFENONE
     Indication: Atrial fibrillation
     Dates: start: 202405, end: 20240926
  4. INDAPAMIDE\PERINDOPRIL ERBUMINE [Suspect]
     Active Substance: INDAPAMIDE\PERINDOPRIL ERBUMINE
     Indication: Hypertension
     Dates: start: 202405, end: 20240926
  5. LERCANIDIPINE [Concomitant]
     Active Substance: LERCANIDIPINE
     Indication: Hypertension
     Dates: start: 202405

REACTIONS (57)
  - Toxic epidermal necrolysis [Fatal]
  - Swelling of eyelid [Fatal]
  - Erythema of eyelid [Fatal]
  - Lip swelling [Fatal]
  - Odynophagia [Fatal]
  - Rash pruritic [Fatal]
  - Conjunctivitis [Fatal]
  - Dysphagia [Fatal]
  - Pyrexia [Fatal]
  - Rash maculo-papular [Fatal]
  - Blister [Fatal]
  - Hypoproteinaemia [Fatal]
  - Hypoalbuminaemia [Fatal]
  - Iron deficiency [Fatal]
  - Neutrophilia [Fatal]
  - Lymphopenia [Fatal]
  - Rash [Fatal]
  - Enanthema [Fatal]
  - Skin erosion [Fatal]
  - Skin exfoliation [Fatal]
  - Skin haemorrhage [Fatal]
  - Dehydration [Fatal]
  - Normochromic normocytic anaemia [Fatal]
  - Hyperfibrinogenaemia [Fatal]
  - Necrosis [Fatal]
  - Hypothermia [Fatal]
  - Hypotension [Fatal]
  - Keratitis [Fatal]
  - Loss of consciousness [Fatal]
  - Areflexia [Fatal]
  - Pancytopenia [Fatal]
  - Bronchitis bacterial [Fatal]
  - Bronchial oedema [Fatal]
  - Respiratory failure [Fatal]
  - Tachypnoea [Fatal]
  - Dyspnoea [Fatal]
  - Pulmonary oedema [Fatal]
  - Renal injury [Fatal]
  - Anuria [Fatal]
  - Hypocalcaemia [Fatal]
  - Hyperlactacidaemia [Fatal]
  - Hypocoagulable state [Fatal]
  - Hyperkalaemia [Fatal]
  - Rhabdomyolysis [Fatal]
  - Septic shock [Fatal]
  - Liver injury [Fatal]
  - Sepsis [Fatal]
  - Aspergillus infection [Fatal]
  - Pancreatitis necrotising [Fatal]
  - Atrial fibrillation [Fatal]
  - Bradycardia [Fatal]
  - Hypertrophy [Fatal]
  - Fibrosis [Fatal]
  - Sinusitis [Fatal]
  - Staphylococcal infection [Fatal]
  - Metabolic acidosis [Fatal]
  - Hyperglycaemia [Fatal]

NARRATIVE: CASE EVENT DATE: 20240101
